FAERS Safety Report 6571206-0 (Version None)
Quarter: 2010Q1

REPORT INFORMATION
  Report Type: 
  Country: None (occurrence: None)
  Receive Date: 20100129
  Receipt Date: 20100113
  Transmission Date: 20100710
  Serious: Yes (Hospitalization)
  Sender: FDA-Public Use
  Company Number: 2009AC000308

PATIENT
  Age: 74 Year
  Sex: Female

DRUGS (34)
  1. DIGOXIN [Suspect]
     Dosage: .125 MG; UNKNOWN; PO 0.125 MG;QD;PO
     Route: 048
     Dates: end: 20040101
  2. DIGOXIN [Suspect]
     Dosage: .125 MG; UNKNOWN; PO 0.125 MG;QD;PO
     Route: 048
     Dates: start: 20080414
  3. ASPIRIN [Concomitant]
  4. ZETIA [Concomitant]
  5. ZOCOR [Concomitant]
  6. LASIX [Concomitant]
  7. INSULIN [Concomitant]
  8. PRINIVIL [Concomitant]
  9. PREDNISONE [Concomitant]
  10. ALBUTEROL [Concomitant]
  11. LOVENOX [Concomitant]
  12. ATROVENT [Concomitant]
  13. CALAN [Concomitant]
  14. COUMADIN [Concomitant]
  15. LEVAQUIN [Concomitant]
  16. PROTONIX [Concomitant]
  17. POTASSIUM [Concomitant]
  18. ADVAIR DISKUS 100/50 [Concomitant]
  19. MUCINEX [Concomitant]
  20. VERPAMIL [Concomitant]
  21. IRON [Concomitant]
  22. LISINOPRIL [Concomitant]
  23. PLAVIX [Concomitant]
  24. XANAX [Concomitant]
  25. CATAPRES [Concomitant]
  26. TYLENOL-500 [Concomitant]
  27. PROTONIX [Concomitant]
  28. VYTORIN [Concomitant]
  29. VERAPAMIL [Concomitant]
  30. ALBUTEROL [Concomitant]
  31. HUMIBID [Concomitant]
  32. AMARYL [Concomitant]
  33. VANCOMYCIN [Concomitant]
  34. GENTAMICIN [Concomitant]

REACTIONS (21)
  - ALBUMIN URINE PRESENT [None]
  - ANAEMIA [None]
  - ATRIAL FIBRILLATION [None]
  - BRADYARRHYTHMIA [None]
  - CHEST PAIN [None]
  - CHOLELITHIASIS [None]
  - CHRONIC OBSTRUCTIVE PULMONARY DISEASE [None]
  - DYSPNOEA [None]
  - ECONOMIC PROBLEM [None]
  - FATIGUE [None]
  - HYPERTENSION [None]
  - HYPOVITAMINOSIS [None]
  - INTRA-ABDOMINAL HAEMATOMA [None]
  - MULTIPLE INJURIES [None]
  - PANCREATITIS ACUTE [None]
  - PARTNER STRESS [None]
  - PNEUMONIA [None]
  - PULMONARY HYPERTENSION [None]
  - SICK SINUS SYNDROME [None]
  - SYNCOPE [None]
  - THERAPEUTIC AGENT TOXICITY [None]
